FAERS Safety Report 13134930 (Version 8)
Quarter: 2018Q2

REPORT INFORMATION
  Report Type: Report from Study
  Country: JP (occurrence: JP)
  Receive Date: 20170120
  Receipt Date: 20180402
  Transmission Date: 20180711
  Serious: Yes (Death, Life-Threatening, Other)
  Sender: FDA-Public Use
  Company Number: JP-B.I. PHARMACEUTICALS,INC./RIDGEFIELD-2017-NB-000263

PATIENT
  Age: 8 Decade
  Sex: Female
  Weight: 63 kg

DRUGS (4)
  1. ALDACTONE A [Concomitant]
     Active Substance: SPIRONOLACTONE
     Indication: PRODUCT USED FOR UNKNOWN INDICATION
     Route: 048
  2. PRAZAXA [Suspect]
     Active Substance: DABIGATRAN ETEXILATE MESYLATE
     Indication: ATRIAL FIBRILLATION
     Route: 048
     Dates: end: 20170118
  3. SELARA [Concomitant]
     Active Substance: EPLERENONE
     Indication: PRODUCT USED FOR UNKNOWN INDICATION
     Route: 048
  4. MAINTATE [Concomitant]
     Active Substance: BISOPROLOL FUMARATE
     Indication: PRODUCT USED FOR UNKNOWN INDICATION
     Route: 048

REACTIONS (8)
  - Cerebral haemorrhage [Unknown]
  - Acute kidney injury [Not Recovered/Not Resolved]
  - Carotid artery occlusion [Fatal]
  - Thoracic haemorrhage [Fatal]
  - Cerebral infarction [Fatal]
  - Brain oedema [Not Recovered/Not Resolved]
  - Brain herniation [Fatal]
  - Aortic dissection [Unknown]

NARRATIVE: CASE EVENT DATE: 20170118
